FAERS Safety Report 14547306 (Version 1)
Quarter: 2018Q1

REPORT INFORMATION
  Report Type: Spontaneous
  Country: US (occurrence: US)
  Receive Date: 20180219
  Receipt Date: 20180219
  Transmission Date: 20180509
  Serious: Yes (Other)
  Sender: FDA-Public Use
  Company Number: US-BAYER-2018-030644

PATIENT

DRUGS (2)
  1. AVELOX [Suspect]
     Active Substance: MOXIFLOXACIN HYDROCHLORIDE
     Dosage: 400 MG, UNK
     Dates: start: 201011
  2. LEVAQUIN [Suspect]
     Active Substance: LEVOFLOXACIN
     Dosage: UNK
     Dates: start: 201103

REACTIONS (1)
  - Neuropathy peripheral [Not Recovered/Not Resolved]
